FAERS Safety Report 22239104 (Version 1)
Quarter: 2023Q2

REPORT INFORMATION
  Report Type: Spontaneous
  Country: AT (occurrence: AT)
  Receive Date: 20230421
  Receipt Date: 20230421
  Transmission Date: 20230721
  Serious: Yes (Hospitalization, Other)
  Sender: FDA-Public Use
  Company Number: AT-JNJFOC-20230436413

PATIENT
  Age: 39 Year
  Sex: Male
  Weight: 56 kg

DRUGS (3)
  1. REMICADE [Suspect]
     Active Substance: INFLIXIMAB
     Indication: Crohn^s disease
     Route: 041
     Dates: start: 20210218
  2. REMICADE [Suspect]
     Active Substance: INFLIXIMAB
     Route: 041
  3. REMICADE [Suspect]
     Active Substance: INFLIXIMAB
     Route: 041
     Dates: start: 202201

REACTIONS (11)
  - Ileal stenosis [Unknown]
  - Ileocaecal resection [Unknown]
  - Hyponatraemia [Unknown]
  - Ileostomy [Recovered/Resolved]
  - Dehydration [Unknown]
  - Surgery [Unknown]
  - Adhesiolysis [Unknown]
  - Wound closure [Unknown]
  - Prolapse [Unknown]
  - Drug specific antibody [Unknown]
  - Abdominal pain [Unknown]

NARRATIVE: CASE EVENT DATE: 20210101
